FAERS Safety Report 11418891 (Version 2)
Quarter: 2015Q4

REPORT INFORMATION
  Report Type: Spontaneous
  Country: US (occurrence: US)
  Receive Date: 20150826
  Receipt Date: 20151001
  Transmission Date: 20160304
  Serious: Yes (Death, Hospitalization, Other)
  Sender: FDA-Public Use
  Company Number: US-BRISTOL-MYERS SQUIBB COMPANY-BMS-2015-054619

PATIENT
  Age: 83 Year
  Sex: Male

DRUGS (1)
  1. YERVOY [Suspect]
     Active Substance: IPILIMUMAB
     Indication: METASTATIC MALIGNANT MELANOMA
     Dosage: 180 MG, Q3WK
     Route: 042
     Dates: start: 20150629, end: 20150810

REACTIONS (12)
  - Melaena [Unknown]
  - Metastases to adrenals [Unknown]
  - Mental status changes [Unknown]
  - Back pain [Unknown]
  - Fall [Unknown]
  - Gastrointestinal haemorrhage [Recovering/Resolving]
  - Failure to thrive [Unknown]
  - Rash [Unknown]
  - Metastases to liver [Unknown]
  - Death [Fatal]
  - Enterocolitis [Unknown]
  - Depressed level of consciousness [Unknown]

NARRATIVE: CASE EVENT DATE: 20150810
